APPROVED DRUG PRODUCT: PENTAMIDINE ISETHIONATE
Active Ingredient: PENTAMIDINE ISETHIONATE
Strength: 300MG/VIAL
Dosage Form/Route: INJECTABLE;INJECTION
Application: A073617 | Product #001
Applicant: BAXTER HEALTHCARE CORP ANESTHESIA AND CRITICAL CARE
Approved: Dec 18, 1995 | RLD: No | RS: No | Type: DISCN